FAERS Safety Report 20693084 (Version 3)
Quarter: 2022Q3

REPORT INFORMATION
  Report Type: Spontaneous
  Country: JP (occurrence: JP)
  Receive Date: 20220410
  Receipt Date: 20220701
  Transmission Date: 20221027
  Serious: Yes (Hospitalization, Other)
  Sender: FDA-Public Use
  Company Number: JP-KYOWAKIRIN-2022AKK005054

PATIENT
  Age: 47 Year
  Sex: Female

DRUGS (13)
  1. PEGFILGRASTIM [Suspect]
     Active Substance: PEGFILGRASTIM
     Indication: Breast cancer
     Dosage: UNK
     Route: 058
     Dates: start: 20211230, end: 20220224
  2. PEGFILGRASTIM [Suspect]
     Active Substance: PEGFILGRASTIM
     Indication: Colony stimulating factor therapy
     Dosage: UNK
     Route: 058
  3. EPIRUBICIN HYDROCHLORIDE [Concomitant]
     Active Substance: EPIRUBICIN HYDROCHLORIDE
     Indication: Colony stimulating factor therapy
     Dosage: UNK
     Route: 041
     Dates: start: 202112
  4. CYCLOPHOSPHAMIDE [Concomitant]
     Active Substance: CYCLOPHOSPHAMIDE
     Indication: Breast cancer
     Dosage: 980 MILLIGRAM
     Route: 041
     Dates: start: 20211227, end: 20220207
  5. PACLITAXEL [Suspect]
     Active Substance: PACLITAXEL
     Indication: Colony stimulating factor therapy
     Dosage: UNK
     Route: 041
     Dates: start: 20220221
  6. PACLITAXEL [Suspect]
     Active Substance: PACLITAXEL
     Dosage: UNK
     Route: 041
  7. PREDNISOLONE ACETATE [Concomitant]
     Active Substance: PREDNISOLONE ACETATE
     Indication: Prophylaxis
     Dosage: UNK
     Route: 065
  8. NEXIUM [Concomitant]
     Active Substance: ESOMEPRAZOLE MAGNESIUM
     Indication: Colony stimulating factor therapy
     Dosage: UNK
     Route: 065
     Dates: start: 20211229
  9. APREPITANT [Concomitant]
     Active Substance: APREPITANT
     Dosage: 150 MILLIGRAM, QD
     Dates: start: 20211229, end: 20220209
  10. APREPITANT [Concomitant]
     Active Substance: APREPITANT
     Dosage: 80 MILLIGRAM, QD
     Dates: start: 20211229, end: 20220209
  11. DECADRON [Concomitant]
     Active Substance: DEXAMETHASONE
     Indication: Colony stimulating factor therapy
     Dosage: 8 MILLIGRAM, QD
     Route: 048
     Dates: start: 20211228, end: 20220210
  12. FERROUS SULFATE [Concomitant]
     Active Substance: FERROUS SULFATE
     Indication: Anaemia
     Dosage: UNK
     Dates: start: 20211201, end: 20220208
  13. LEVOFLOXACIN HEMIHYDRATE [Concomitant]
     Active Substance: LEVOFLOXACIN
     Indication: Colony stimulating factor therapy
     Dosage: 500 MILLIGRAM, QD
     Route: 065
     Dates: start: 20211229

REACTIONS (1)
  - Interstitial lung disease [Unknown]

NARRATIVE: CASE EVENT DATE: 20220228
